FAERS Safety Report 7916973-6 (Version None)
Quarter: 2011Q4

REPORT INFORMATION
  Report Type: 
  Country: None (occurrence: None)
  Receive Date: 20111116
  Receipt Date: 20111116
  Transmission Date: 20120403
  Serious: Yes (Disabling)
  Sender: FDA-Public Use
  Company Number: None

PATIENT
  Sex: Male
  Weight: 86.182 kg

DRUGS (3)
  1. PEGASYS [Suspect]
     Indication: HEPATITIS C
     Dosage: 180MCG
     Route: 058
     Dates: start: 20110830, end: 20110920
  2. INCIVEK [Concomitant]
     Dosage: 750MG
     Route: 048
     Dates: start: 20110830, end: 20110920
  3. RIBAVIRIN [Interacting]

REACTIONS (1)
  - PLATELET COUNT DECREASED [None]
